FAERS Safety Report 14561695 (Version 2)
Quarter: 2018Q2

REPORT INFORMATION
  Report Type: Report from Study
  Country: US (occurrence: US)
  Receive Date: 20180222
  Receipt Date: 20180424
  Transmission Date: 20180711
  Serious: Yes (Other)
  Sender: FDA-Public Use
  Company Number: US-ASTRAZENECA-2018SE21054

PATIENT
  Age: 25946 Day
  Sex: Female

DRUGS (2)
  1. TAGRISSO [Suspect]
     Active Substance: OSIMERTINIB
     Indication: LUNG NEOPLASM MALIGNANT
     Route: 048
     Dates: start: 20171228
  2. TAGRISSO [Suspect]
     Active Substance: OSIMERTINIB
     Indication: LUNG NEOPLASM MALIGNANT
     Route: 048
     Dates: start: 2018

REACTIONS (6)
  - Deafness [Unknown]
  - Rash erythematous [Recovered/Resolved]
  - Dry skin [Unknown]
  - Oral pain [Unknown]
  - Paraesthesia oral [Unknown]
  - Nausea [Unknown]

NARRATIVE: CASE EVENT DATE: 20180102
